FAERS Safety Report 15931553 (Version 2)
Quarter: 2019Q1

REPORT INFORMATION
  Report Type: Spontaneous
  Country: US (occurrence: US)
  Receive Date: 20190207
  Receipt Date: 20190321
  Transmission Date: 20190417
  Serious: Yes (Other)
  Sender: FDA-Public Use
  Company Number: PHEH2019US004709

PATIENT
  Age: 76 Year
  Sex: Female

DRUGS (2)
  1. LYRICA [Suspect]
     Active Substance: PREGABALIN
     Indication: NEUROPATHY PERIPHERAL
     Dosage: 2 DF, TID
     Route: 065
  2. LETROZOLE. [Suspect]
     Active Substance: LETROZOLE
     Indication: PRODUCT USED FOR UNKNOWN INDICATION
     Dosage: 2.5 MG, UNK
     Route: 065

REACTIONS (7)
  - Haemoglobin decreased [Unknown]
  - Paraesthesia [Unknown]
  - Hip fracture [Unknown]
  - Fall [Unknown]
  - Poor quality sleep [Unknown]
  - Osteoporosis [Unknown]
  - Overweight [Unknown]

NARRATIVE: CASE EVENT DATE: 20181116
